FAERS Safety Report 5256785-8 (Version None)
Quarter: 2007Q1

REPORT INFORMATION
  Report Type: 
  Country: None (occurrence: None)
  Receive Date: 20070302
  Receipt Date: 20070223
  Transmission Date: 20070707
  Serious: Yes (Hospitalization)
  Sender: FDA-Public Use
  Company Number: 163-20785-07021221

PATIENT
  Age: 72 Year
  Sex: Male

DRUGS (29)
  1. THALOMID [Suspect]
     Indication: MULTIPLE MYELOMA
     Dosage: SEE IMAGE
     Route: 048
     Dates: start: 20061007, end: 20061017
  2. THALOMID [Suspect]
     Indication: MULTIPLE MYELOMA
     Dosage: SEE IMAGE
     Route: 048
     Dates: start: 20061028, end: 20061107
  3. THALOMID [Suspect]
     Indication: MULTIPLE MYELOMA
     Dosage: SEE IMAGE
     Route: 048
     Dates: start: 20061124, end: 20070124
  4. DEXAMETHASONE TAB [Suspect]
     Indication: MULTIPLE MYELOMA
     Dosage: 20 MG, QD X 4 DAYS EVERY 21 DAYS, ORAL
     Route: 048
     Dates: start: 20061007, end: 20061010
  5. VELCADE [Suspect]
     Indication: MULTIPLE MYELOMA
     Dosage: 1.9 MG, DAYS 1, 4, 8, + 11, INTRAVENOUS
     Route: 042
     Dates: start: 20060726, end: 20060726
  6. VELCADE [Suspect]
     Indication: MULTIPLE MYELOMA
     Dosage: 1.9 MG, DAYS 1, 4, 8, + 11, INTRAVENOUS
     Route: 042
     Dates: start: 20060729, end: 20060729
  7. VELCADE [Suspect]
     Indication: MULTIPLE MYELOMA
     Dosage: 1.9 MG, DAYS 1, 4, 8, + 11, INTRAVENOUS
     Route: 042
     Dates: start: 20060802, end: 20060802
  8. VELCADE [Suspect]
     Indication: MULTIPLE MYELOMA
     Dosage: 1.9 MG, DAYS 1, 4, 8, + 11, INTRAVENOUS
     Route: 042
     Dates: start: 20060805, end: 20060805
  9. MELPHALAN (MELPHALAN) [Suspect]
     Indication: MULTIPLE MYELOMA
     Dosage: 250 MG, SINGLE DOSE, INTRAVENOUS
     Route: 042
     Dates: start: 20060906, end: 20060906
  10. DOXYCYCLINE HYCLATE (DOXYCYCLINE HYCLATE [Concomitant]
  11. LEVAQUIN [Concomitant]
  12. ZYPREXA [Concomitant]
  13. CALCIUM + D (CALCITE D) (TABLETS) [Concomitant]
  14. ZANTAC (RANITIDINE HYDROCHLORIDE) (CAPSULES) [Concomitant]
  15. OXYCODONE (OXYCODONE) (TABLETS) [Concomitant]
  16. RESTORIL (TEMAZEPAM) (TABLETS) [Concomitant]
  17. ACYCLOVIR (ACICLOVIR) (TABLETS) [Concomitant]
  18. MAGNESIUM OXIDE (MAGNESIUM OXIDE) (TABLETS) [Concomitant]
  19. ALPRAZOLAM (ALPRAZOLAM) (TABLETS) [Concomitant]
  20. PEXEVA (PAROXETINE MESILATE) (TABLETS) [Concomitant]
  21. COREG [Concomitant]
  22. LORAZEPAM (LORAZEPAM) (TABLETS) [Concomitant]
  23. CARAFATE (SUCRALFATE) (TABLETS) [Concomitant]
  24. PENTAMIDINE ISETHIONATE [Concomitant]
  25. POTASSIUM BICARBONATE (POTASSIUM BICARBONATE) [Concomitant]
  26. REGLAN / BENADRYL (METOCLOPRAMIDE HYDROCHLORIDE) (METOCLOPRAMIDE HYDRO [Concomitant]
  27. MAXIPIME [Concomitant]
  28. FOLIC ACID [Concomitant]
  29. MULTIVITAMIN [Concomitant]

REACTIONS (10)
  - ASTHENIA [None]
  - BRAIN NATRIURETIC PEPTIDE INCREASED [None]
  - CARDIAC FAILURE CONGESTIVE [None]
  - COLITIS [None]
  - CONFUSIONAL STATE [None]
  - DEHYDRATION [None]
  - NAUSEA [None]
  - PANCYTOPENIA [None]
  - PLEURAL EFFUSION [None]
  - SYSTEMIC CANDIDA [None]
